FAERS Safety Report 16456182 (Version 2)
Quarter: 2019Q2

REPORT INFORMATION
  Report Type: Report from Study
  Country: IT (occurrence: IT)
  Receive Date: 20190620
  Receipt Date: 20190626
  Transmission Date: 20190711
  Serious: Yes (Other)
  Sender: FDA-Public Use
  Company Number: IT-ACCORD-133806

PATIENT
  Age: 42 Year
  Sex: Male

DRUGS (2)
  1. LYSODREN [Concomitant]
     Active Substance: MITOTANE
     Dosage: STRENGTH: 500 MG
  2. CARBOPLATIN. [Suspect]
     Active Substance: CARBOPLATIN
     Indication: ADRENAL GLAND CANCER
     Route: 042
     Dates: start: 20180924

REACTIONS (4)
  - Muscle spasms [Recovering/Resolving]
  - Paraesthesia [Recovering/Resolving]
  - Constipation [Recovering/Resolving]
  - Off label use [Unknown]

NARRATIVE: CASE EVENT DATE: 20181217
